FAERS Safety Report 12433815 (Version 1)
Quarter: 2016Q2

REPORT INFORMATION
  Report Type: Spontaneous
  Country: US (occurrence: US)
  Receive Date: 20160603
  Receipt Date: 20160603
  Transmission Date: 20160815
  Serious: Yes (Other)
  Sender: FDA-Public Use
  Company Number: US-TEVA-664462USA

PATIENT
  Age: 67 Year
  Sex: Male

DRUGS (9)
  1. OXYBUTYNIN [Concomitant]
     Active Substance: OXYBUTYNIN
  2. COD-LIVER [Concomitant]
  3. COPAXONE [Suspect]
     Active Substance: GLATIRAMER ACETATE
     Indication: MULTIPLE SCLEROSIS
     Route: 058
     Dates: start: 20160204
  4. UBIQUINOL [Concomitant]
     Active Substance: UBIQUINOL
  5. CITRUCEL [Concomitant]
     Active Substance: METHYLCELLULOSE (4000 MPA.S)
  6. ENALAPRIL [Concomitant]
     Active Substance: ENALAPRIL
  7. MULTIVITAMIN [Concomitant]
     Active Substance: VITAMINS
  8. VITAMIN B COMPLEX [Concomitant]
     Active Substance: CYANOCOBALAMIN\DEXPANTHENOL\NIACINAMIDE\PYRIDOXINE HYDROCHLORIDE\RIBOFLAVIN 5^-PHOSPHATE SODIUM\THIAMINE HYDROCHLORIDE\VITAMIN B COMPLEX
     Dosage: TAB FORM 1
  9. IBUPROFEN. [Concomitant]
     Active Substance: IBUPROFEN

REACTIONS (2)
  - Hypoaesthesia [Unknown]
  - Multiple sclerosis relapse [Unknown]

NARRATIVE: CASE EVENT DATE: 201605
